FAERS Safety Report 17411341 (Version 1)
Quarter: 2020Q1

REPORT INFORMATION
  Report Type: Spontaneous
  Country: US (occurrence: US)
  Receive Date: 20200212
  Receipt Date: 20200212
  Transmission Date: 20200409
  Serious: No
  Sender: FDA-Public Use
  Company Number: US-BAUSCH-BL-2020-003802

PATIENT
  Sex: Male
  Weight: 88.53 kg

DRUGS (2)
  1. ALREX [Suspect]
     Active Substance: LOTEPREDNOL ETABONATE
     Indication: LACRIMATION INCREASED
     Dosage: EACH EYE EVERY MORNING
     Route: 047
  2. ALREX [Suspect]
     Active Substance: LOTEPREDNOL ETABONATE
     Indication: PHOTOPHOBIA
     Dosage: EACH EYE EVERY MORNING
     Route: 047
     Dates: start: 201905

REACTIONS (6)
  - Lacrimation increased [Unknown]
  - Disease recurrence [Unknown]
  - Photophobia [Unknown]
  - Influenza [Not Recovered/Not Resolved]
  - Product dispensing error [Unknown]
  - Psoriasis [Not Recovered/Not Resolved]

NARRATIVE: CASE EVENT DATE: 2019
